FAERS Safety Report 5721850-5 (Version None)
Quarter: 2008Q2

REPORT INFORMATION
  Report Type: 
  Country: None (occurrence: None)
  Receive Date: 20080429
  Receipt Date: 20080424
  Transmission Date: 20081010
  Serious: Yes (Other)
  Sender: FDA-Public Use
  Company Number: PHNU2008DE01639

PATIENT
  Age: 67 Year
  Sex: Male

DRUGS (1)
  1. IMMUNOSPORIN [Suspect]
     Route: 048

REACTIONS (1)
  - MACULAR DEGENERATION [None]
